FAERS Safety Report 7556952-4 (Version None)
Quarter: 2011Q2

REPORT INFORMATION
  Report Type: 
  Country: None (occurrence: None)
  Receive Date: 20110620
  Receipt Date: 20110607
  Transmission Date: 20111010
  Serious: Yes (Other)
  Sender: FDA-Public Use
  Company Number: PHHY2011DE50130

PATIENT
  Sex: Male
  Weight: 118 kg

DRUGS (1)
  1. TASIGNA [Suspect]
     Indication: CHRONIC MYELOID LEUKAEMIA
     Dosage: 600 MG PER DAY
     Route: 048
     Dates: start: 20110526, end: 20110607

REACTIONS (1)
  - ELECTROCARDIOGRAM QT PROLONGED [None]
